FAERS Safety Report 5450151-8 (Version None)
Quarter: 2007Q3

REPORT INFORMATION
  Report Type: 
  Country: None (occurrence: None)
  Receive Date: 20070912
  Receipt Date: 20070906
  Transmission Date: 20080115
  Serious: Yes (Death, Hospitalization)
  Sender: FDA-Public Use
  Company Number: B0486079A

PATIENT
  Age: 46 Year
  Sex: Female

DRUGS (7)
  1. DEROXAT [Suspect]
     Route: 048
  2. EQUANIL [Suspect]
     Route: 048
  3. MEPRONIZINE [Suspect]
     Route: 048
  4. EFFEXOR [Suspect]
     Route: 048
  5. XANAX [Suspect]
     Route: 048
  6. ZOLOFT [Suspect]
     Route: 048
  7. ALCOHOL [Concomitant]

REACTIONS (11)
  - CARDIAC ARREST [None]
  - COMA [None]
  - DRUG TOXICITY [None]
  - FEELING ABNORMAL [None]
  - HAEMODYNAMIC INSTABILITY [None]
  - HYPERTHERMIA [None]
  - HYPOKALAEMIA [None]
  - HYPOTHERMIA [None]
  - LEUKOCYTOSIS [None]
  - MYDRIASIS [None]
  - RHABDOMYOLYSIS [None]
